FAERS Safety Report 5772216-3 (Version None)
Quarter: 2008Q2

REPORT INFORMATION
  Report Type: 
  Country: None (occurrence: None)
  Receive Date: 20080613
  Receipt Date: 20080603
  Transmission Date: 20081010
  Serious: Yes (Hospitalization)
  Sender: FDA-Public Use
  Company Number: US-JNJFOC-20071100789

PATIENT
  Sex: Male
  Weight: 98.88 kg

DRUGS (8)
  1. TRAMADOL HYDROCHLORIDE [Suspect]
     Route: 048
  2. TRAMADOL HYDROCHLORIDE [Suspect]
     Route: 048
  3. TRAMADOL HYDROCHLORIDE [Suspect]
     Indication: OSTEOARTHRITIS
     Route: 048
  4. MELOXICAM [Suspect]
     Route: 048
  5. MELOXICAM [Suspect]
     Route: 048
  6. MELOXICAM [Suspect]
     Indication: OSTEOARTHRITIS
     Route: 048
  7. CLARITIN [Concomitant]
     Route: 065
  8. ZYRTEC-D 12 HOUR [Concomitant]
     Route: 065

REACTIONS (3)
  - CAROTID ARTERY STENOSIS [None]
  - CEREBROVASCULAR ACCIDENT [None]
  - TRANSIENT ISCHAEMIC ATTACK [None]
